FAERS Safety Report 23812887 (Version 1)
Quarter: 2024Q2

REPORT INFORMATION
  Report Type: Spontaneous
  Country: US (occurrence: US)
  Receive Date: 20240503
  Receipt Date: 20240503
  Transmission Date: 20240716
  Serious: No
  Sender: FDA-Public Use
  Company Number: US-APOTEX-2024AP005463

PATIENT

DRUGS (2)
  1. DOXYCYCLINE [Suspect]
     Active Substance: DOXYCYCLINE
     Indication: Lyme disease
     Dosage: 4.5 MILLIGRAM/KILOGRAM DIVIDED TWICE DAILY.
     Route: 048
  2. DOXYCYCLINE [Suspect]
     Active Substance: DOXYCYCLINE
     Dosage: 4.5 MILLIGRAM/KILOGRAM DIVIDED TWICE DAILY.
     Route: 048

REACTIONS (1)
  - Tooth discolouration [Unknown]
